FAERS Safety Report 9325510 (Version 1)
Quarter: 2013Q2

REPORT INFORMATION
  Report Type: Spontaneous
  Country: US (occurrence: None)
  Receive Date: 20130531
  Receipt Date: 20130531
  Transmission Date: 20140414
  Serious: Yes (Hospitalization)
  Sender: FDA-Public Use
  Company Number: None

PATIENT
  Age: 90 Year
  Sex: Female
  Weight: 49.1 kg

DRUGS (1)
  1. WARFARIN [Suspect]
     Indication: ATRIAL FIBRILLATION
     Dosage: 5MG DAILY PO
     Route: 048

REACTIONS (4)
  - Dizziness [None]
  - International normalised ratio increased [None]
  - Haemorrhoids [None]
  - Gastrointestinal angiodysplasia haemorrhagic [None]
